FAERS Safety Report 11948609 (Version 1)
Quarter: 2016Q1

REPORT INFORMATION
  Report Type: Spontaneous
  Country: US (occurrence: None)
  Receive Date: 20160121
  Receipt Date: 20160121
  Transmission Date: 20160526
  Serious: Yes (Hospitalization)
  Sender: FDA-Public Use
  Company Number: None

PATIENT
  Age: 62 Year
  Sex: Female
  Weight: 64 kg

DRUGS (1)
  1. WARFARIN 5 MG [Suspect]
     Active Substance: WARFARIN
     Indication: ATRIAL FIBRILLATION
     Dosage: 1-1/2 TABLETS QD ORAL

REACTIONS (3)
  - Pain in extremity [None]
  - Skin necrosis [None]
  - International normalised ratio increased [None]

NARRATIVE: CASE EVENT DATE: 20160113
